FAERS Safety Report 6303068-0 (Version None)
Quarter: 2009Q3

REPORT INFORMATION
  Report Type: 
  Country: None (occurrence: None)
  Receive Date: 20090810
  Receipt Date: 20090728
  Transmission Date: 20100115
  Serious: Yes (Other)
  Sender: FDA-Public Use
  Company Number: SG-ROCHE-646240

PATIENT
  Sex: Male
  Weight: 45 kg

DRUGS (3)
  1. TAMIFLU [Suspect]
     Indication: VIRAL INFECTION
     Route: 048
     Dates: start: 20090727, end: 20090727
  2. ACETAMINOPHEN [Concomitant]
     Route: 048
     Dates: start: 20090727
  3. CHLORPHENIRAMINE MALEATE [Concomitant]
     Route: 048
     Dates: start: 20090727

REACTIONS (2)
  - DISORIENTATION [None]
  - INCOHERENT [None]
